FAERS Safety Report 7208012-X (Version None)
Quarter: 2011Q1

REPORT INFORMATION
  Report Type: 
  Country: None (occurrence: None)
  Receive Date: 20110104
  Receipt Date: 20101228
  Transmission Date: 20110831
  Serious: Yes (Hospitalization, Other)
  Sender: FDA-Public Use
  Company Number: DE-SANOFI-AVENTIS-2010SA047967

PATIENT
  Age: 77 Year
  Sex: Male
  Weight: 91 kg

DRUGS (3)
  1. GLIMEPIRID WINTHROP [Suspect]
     Indication: TYPE 2 DIABETES MELLITUS
     Dosage: 2X 0.5 TABLETS (2X 1.5 MG) DAILY PER OS
     Route: 048
     Dates: start: 20091030, end: 20091101
  2. BISOPROLOL [Concomitant]
     Dosage: START: SEVERAL YEARS AGO; 1X1 AT 5 MG DAILY  PER OS
     Route: 048
     Dates: end: 20091231
  3. FALITHROM ^HEXAL^ [Concomitant]
     Dosage: START: SEVERAL YEARS AGO; SINGLE DOSE AND FREQUENCY UNKNOWN
     Route: 048
     Dates: end: 20091109

REACTIONS (5)
  - PYREXIA [None]
  - RENAL FAILURE ACUTE [None]
  - RASH [None]
  - GLOMERULONEPHRITIS [None]
  - LEUKOCYTOCLASTIC VASCULITIS [None]
